FAERS Safety Report 24580163 (Version 2)
Quarter: 2024Q4

REPORT INFORMATION
  Report Type: Report from Study
  Country: US (occurrence: US)
  Receive Date: 20241105
  Receipt Date: 20241212
  Transmission Date: 20250115
  Serious: No
  Sender: ROCHE
  Company Number: US-ROCHE-10000123293

PATIENT
  Age: 52 Year
  Sex: Male

DRUGS (1)
  1. OCREVUS [Suspect]
     Active Substance: OCRELIZUMAB
     Indication: Multiple sclerosis
     Dosage: INFUSE 600 MG IV EVERY 6 MONTHS
     Route: 042
     Dates: start: 20190610, end: 20200412

REACTIONS (2)
  - Herpes zoster [Recovered/Resolved]
  - Amnesia [Not Recovered/Not Resolved]
